FAERS Safety Report 20399289 (Version 2)
Quarter: 2022Q1

REPORT INFORMATION
  Report Type: Spontaneous
  Country: US (occurrence: US)
  Receive Date: 20220131
  Receipt Date: 20220201
  Transmission Date: 20220423
  Serious: No
  Sender: FDA-Public Use
  Company Number: US-ABBVIE-21K-163-3943055-00

PATIENT
  Sex: Female
  Weight: 64.922 kg

DRUGS (2)
  1. HUMIRA [Suspect]
     Active Substance: ADALIMUMAB
     Indication: Arthritis
     Route: 058
     Dates: start: 202105
  2. FORTEO [Concomitant]
     Active Substance: TERIPARATIDE
     Indication: Osteogenesis imperfecta

REACTIONS (2)
  - Blood pressure increased [Not Recovered/Not Resolved]
  - Headache [Unknown]
